FAERS Safety Report 5505572-1 (Version None)
Quarter: 2007Q4

REPORT INFORMATION
  Report Type: 
  Country: None (occurrence: None)
  Receive Date: 20071102
  Receipt Date: 20071026
  Transmission Date: 20080405
  Serious: Yes (Other)
  Sender: FDA-Public Use
  Company Number: BR-ASTRAZENECA-2007UW24962

PATIENT
  Age: 53 Year
  Sex: Female
  Weight: 61 kg

DRUGS (4)
  1. ATENOL [Suspect]
     Indication: HYPERTENSION
     Route: 048
  2. ARADOIS H [Concomitant]
     Indication: HYPERTENSION
     Route: 048
     Dates: start: 20070101
  3. AMITRIPTLINA [Concomitant]
     Indication: DEPRESSION
     Route: 048
  4. APRAZ [Concomitant]
     Indication: INSOMNIA
     Route: 048

REACTIONS (4)
  - DRUG INEFFECTIVE [None]
  - HEADACHE [None]
  - HYPERTENSION [None]
  - NECK PAIN [None]
